FAERS Safety Report 10083739 (Version 1)
Quarter: 2014Q2

REPORT INFORMATION
  Report Type: Spontaneous
  Country: JP (occurrence: None)
  Receive Date: 20140415
  Receipt Date: 20140415
  Transmission Date: 20141212
  Serious: Yes (Hospitalization)
  Sender: FDA-Public Use
  Company Number: AXC-2014-000248

PATIENT
  Age: 84 Year
  Sex: Male

DRUGS (1)
  1. URSODEOXYCHOLIC ACID [Suspect]
     Indication: ALANINE AMINOTRANSFERASE INCREASED
     Route: 048
     Dates: start: 2004

REACTIONS (1)
  - Cardiac valve disease [None]
